FAERS Safety Report 14007630 (Version 1)
Quarter: 2017Q3

REPORT INFORMATION
  Report Type: Spontaneous
  Country: US (occurrence: None)
  Receive Date: 20170924
  Receipt Date: 20170924
  Transmission Date: 20171128
  Serious: No
  Sender: FDA-Public Use
  Company Number: None

PATIENT
  Age: 44 Year
  Sex: Female

DRUGS (1)
  1. HUMIRA [Suspect]
     Active Substance: ADALIMUMAB
     Indication: PRODUCT USED FOR UNKNOWN INDICATION
     Dosage: 40MG EVERY OTHER WEEK SQ
     Route: 058
     Dates: start: 20160712

REACTIONS (3)
  - Rash [None]
  - Pruritus generalised [None]
  - Injection site rash [None]

NARRATIVE: CASE EVENT DATE: 20170921
